FAERS Safety Report 13125798 (Version 1)
Quarter: 2017Q1

REPORT INFORMATION
  Report Type: Spontaneous
  Country: US (occurrence: US)
  Receive Date: 20170118
  Receipt Date: 20170118
  Transmission Date: 20170428
  Serious: No
  Sender: FDA-Public Use
  Company Number: US-DEPOMED, INC.-US-2016DEP008202

PATIENT

DRUGS (3)
  1. NUCYNTA [Suspect]
     Active Substance: TAPENTADOL HYDROCHLORIDE
     Indication: PAIN
     Dosage: 50 MG, BID
     Route: 048
     Dates: start: 201510
  2. NUCYNTA [Suspect]
     Active Substance: TAPENTADOL HYDROCHLORIDE
     Indication: TRIGEMINAL NEURALGIA
  3. VITAMINS NOS [Concomitant]
     Active Substance: VITAMINS
     Indication: VITAMIN SUPPLEMENTATION
     Dosage: DF

REACTIONS (3)
  - Drug effect decreased [Recovered/Resolved]
  - Product quality issue [Recovered/Resolved]
  - Fatigue [Recovered/Resolved]

NARRATIVE: CASE EVENT DATE: 201510
